FAERS Safety Report 5465380-7 (Version None)
Quarter: 2007Q3

REPORT INFORMATION
  Report Type: 
  Country: None (occurrence: None)
  Receive Date: 20070920
  Receipt Date: 20070920
  Transmission Date: 20080115
  Serious: Yes (Hospitalization)
  Sender: FDA-Public Use
  Company Number: None

PATIENT
  Age: 63 Year
  Sex: Male

DRUGS (2)
  1. LISINOPRIL AND HYDROCHLOROTHIAZIDE [Suspect]
     Indication: HYPERTENSION
     Dosage: 1TAB EVERY DAY PO
     Route: 048
     Dates: start: 20060522, end: 20070914
  2. TERAZOSIN HCL [Suspect]
     Dosage: 5MG HS PO
     Route: 048
     Dates: start: 20060609, end: 20070914

REACTIONS (2)
  - HYPOTENSION [None]
  - SYNCOPE [None]
